FAERS Safety Report 8914417 (Version 2)
Quarter: 2012Q4

REPORT INFORMATION
  Report Type: 
  Country: US (occurrence: US)
  Receive Date: 20121119
  Receipt Date: 20121126
  Transmission Date: 20130627
  Serious: No
  Sender: FDA-Public Use
  Company Number: US-009507513-1210USA009749

PATIENT
  Sex: Male
  Weight: 92.97 kg

DRUGS (2)
  1. CLARITIN-D 12 HOUR [Suspect]
     Indication: SEASONAL ALLERGY
     Dosage: 5 mg, bid
     Route: 048
     Dates: start: 201208, end: 201209
  2. FLUTICASONE [Concomitant]
     Indication: SEASONAL ALLERGY
     Dosage: UNK, Unknown

REACTIONS (1)
  - Drug ineffective [Unknown]
